FAERS Safety Report 5330020-4 (Version None)
Quarter: 2007Q2

REPORT INFORMATION
  Report Type: 
  Country: None (occurrence: None)
  Receive Date: 20070521
  Receipt Date: 20070511
  Transmission Date: 20071010
  Serious: Yes (Other)
  Sender: FDA-Public Use
  Company Number: B0471533A

PATIENT
  Age: 36 Year
  Sex: Female

DRUGS (5)
  1. SALBUTAMOL [Suspect]
     Indication: ASTHMA
     Route: 055
  2. LACTULOSE [Concomitant]
  3. SERETIDE [Concomitant]
     Route: 055
  4. VENTOLIN [Concomitant]
     Route: 055
  5. STEROID [Concomitant]

REACTIONS (1)
  - ASTHMA [None]
